FAERS Safety Report 7249506-0 (Version None)
Quarter: 2011Q1

REPORT INFORMATION
  Report Type: 
  Country: None (occurrence: None)
  Receive Date: 20110128
  Receipt Date: 20101207
  Transmission Date: 20110831
  Serious: Yes (Hospitalization)
  Sender: FDA-Public Use
  Company Number: US-BAYER-201031756NA

PATIENT
  Sex: Female
  Weight: 131.52 kg

DRUGS (2)
  1. YASMIN [Suspect]
  2. YAZ [Suspect]
     Dosage: UNK
     Dates: start: 20080101

REACTIONS (3)
  - PULMONARY EMBOLISM [None]
  - PAIN [None]
  - PULMONARY THROMBOSIS [None]
